FAERS Safety Report 4783655-1 (Version None)
Quarter: 2005Q3

REPORT INFORMATION
  Report Type: 
  Country: None (occurrence: None)
  Receive Date: 20050928
  Receipt Date: 20050914
  Transmission Date: 20060218
  Serious: Yes (Hospitalization)
  Sender: FDA-Public Use
  Company Number: SE-2005-019268

PATIENT
  Age: 34 Year
  Sex: Female

DRUGS (1)
  1. YASMIN [Suspect]
     Indication: ORAL CONTRACEPTION
     Dosage: 1 TAB(S), 1X/21 DAYS, ORAL
     Route: 048
     Dates: start: 20030601, end: 20041201

REACTIONS (5)
  - ARTERIAL THROMBOSIS [None]
  - COLITIS ISCHAEMIC [None]
  - HYPERHOMOCYSTEINAEMIA [None]
  - LARGE INTESTINAL ULCER HAEMORRHAGE [None]
  - SYNCOPE [None]
